FAERS Safety Report 23287659 (Version 1)
Quarter: 2023Q4

REPORT INFORMATION
  Report Type: Spontaneous
  Country: US (occurrence: None)
  Receive Date: 20231212
  Receipt Date: 20231212
  Transmission Date: 20240109
  Serious: Yes (Death, Hospitalization)
  Sender: FDA-Public Use
  Company Number: None

PATIENT
  Age: 74 Year
  Sex: Female
  Weight: 65.32 kg

DRUGS (2)
  1. CARBOPLATIN [Suspect]
     Active Substance: CARBOPLATIN
     Dates: end: 20231013
  2. ALIMTA [Suspect]
     Active Substance: PEMETREXED DISODIUM
     Dates: end: 20231013

REACTIONS (5)
  - Multiple organ dysfunction syndrome [None]
  - Oedema peripheral [None]
  - Pulmonary embolism [None]
  - Cardiac disorder [None]
  - Respiratory failure [None]

NARRATIVE: CASE EVENT DATE: 20231202
